FAERS Safety Report 16157195 (Version 2)
Quarter: 2019Q2

REPORT INFORMATION
  Report Type: Spontaneous
  Country: US (occurrence: US)
  Receive Date: 20190404
  Receipt Date: 20190423
  Transmission Date: 20190711
  Serious: No
  Sender: FDA-Public Use
  Company Number: US-MYLANLABS-2019M1025323

PATIENT
  Age: 85 Year
  Sex: Female

DRUGS (1)
  1. ESTRADIOL. [Suspect]
     Active Substance: ESTRADIOL
     Indication: INCONTINENCE
     Dosage: UNK UNK, BIWEEKLY
     Route: 065

REACTIONS (1)
  - Off label use [Unknown]
